FAERS Safety Report 21374231 (Version 3)
Quarter: 2022Q3

REPORT INFORMATION
  Report Type: Spontaneous
  Country: US (occurrence: US)
  Receive Date: 20220926
  Receipt Date: 20220930
  Transmission Date: 20221027
  Serious: No
  Sender: FDA-Public Use
  Company Number: US-NOVARTISTESTPH-NVSC2022US216494

PATIENT
  Age: 68 Year
  Sex: Female

DRUGS (1)
  1. IMIPRAMINE [Suspect]
     Active Substance: IMIPRAMINE
     Indication: Depression
     Dosage: UNK,(SINCE PATIENT WAS 19)
     Route: 065

REACTIONS (2)
  - Dental caries [Unknown]
  - Dry mouth [Unknown]
